FAERS Safety Report 7543455-6 (Version None)
Quarter: 2011Q2

REPORT INFORMATION
  Report Type: 
  Country: None (occurrence: None)
  Receive Date: 20110524
  Receipt Date: 20110131
  Transmission Date: 20111010
  Serious: No
  Sender: FDA-Public Use
  Company Number: 022174

PATIENT
  Sex: Female
  Weight: 83 kg

DRUGS (2)
  1. CIMZIA [Suspect]
     Indication: CROHN'S DISEASE
     Dosage: (200 MG 1X/2 WEEKS SUBCUTANEOUS)
     Route: 058
     Dates: start: 20090401
  2. KEFLEX [Concomitant]

REACTIONS (8)
  - VAGINAL HAEMATOMA [None]
  - INJECTION SITE SWELLING [None]
  - GAIT DISTURBANCE [None]
  - CONTUSION [None]
  - PAIN [None]
  - INFECTION [None]
  - CROHN'S DISEASE [None]
  - INJECTION SITE PAIN [None]
